FAERS Safety Report 6947933-X (Version None)
Quarter: 2010Q3

REPORT INFORMATION
  Report Type: 
  Country: None (occurrence: None)
  Receive Date: 20100828
  Receipt Date: 20091012
  Transmission Date: 20110219
  Serious: No
  Sender: FDA-Public Use
  Company Number: US-ABBOTT-09P-163-0602044-00

PATIENT
  Sex: Female
  Weight: 48.124 kg

DRUGS (7)
  1. NIASPAN [Suspect]
     Indication: BLOOD TRIGLYCERIDES INCREASED
     Dates: start: 20090801, end: 20090801
  2. NIASPAN [Suspect]
     Dates: start: 20090901, end: 20090901
  3. NIASPAN [Suspect]
     Dates: start: 20091001
  4. ASPIRIN [Concomitant]
     Indication: PRODUCT USED FOR UNKNOWN INDICATION
  5. CENTRUM [Concomitant]
     Indication: PRODUCT USED FOR UNKNOWN INDICATION
  6. MOTRIN [Concomitant]
     Indication: CYST
  7. MOTRIN [Concomitant]
     Indication: PAIN

REACTIONS (5)
  - FEELING HOT [None]
  - MENSTRUAL DISORDER [None]
  - MYALGIA [None]
  - PRURITUS [None]
  - RENAL PAIN [None]
